FAERS Safety Report 10351356 (Version 1)
Quarter: 2014Q3

REPORT INFORMATION
  Report Type: Spontaneous
  Country: NO (occurrence: NO)
  Receive Date: 20140730
  Receipt Date: 20140730
  Transmission Date: 20150326
  Serious: Yes (Hospitalization)
  Sender: FDA-Public Use
  Company Number: NO-PFIZER INC-2014207965

PATIENT
  Age: 32 Year
  Sex: Male

DRUGS (3)
  1. MORPHINE SULFATE. [Suspect]
     Active Substance: MORPHINE SULFATE
     Indication: PAIN
     Dates: start: 20140707, end: 20140708
  2. PARACET [Concomitant]
     Active Substance: ACETAMINOPHEN
     Dosage: 1 G X 0-4
     Route: 048
  3. AFIPRAN [Concomitant]
     Dosage: 10MG X 0-3
     Route: 048

REACTIONS (2)
  - Paranoia [Recovered/Resolved]
  - Confusional state [Recovered/Resolved]

NARRATIVE: CASE EVENT DATE: 20140707
